FAERS Safety Report 7916975-X (Version None)
Quarter: 2011Q4

REPORT INFORMATION
  Report Type: 
  Country: None (occurrence: None)
  Receive Date: 20111116
  Receipt Date: 20111116
  Transmission Date: 20120403
  Serious: Yes (Hospitalization)
  Sender: FDA-Public Use
  Company Number: None

PATIENT
  Age: 71 Year
  Sex: Male
  Weight: 58.967 kg

DRUGS (1)
  1. PRAVASTATIN [Suspect]
     Indication: BLOOD CHOLESTEROL INCREASED
     Dosage: 5MG
     Route: 048
     Dates: start: 20110615, end: 20111008

REACTIONS (8)
  - FATIGUE [None]
  - FALL [None]
  - DYSPHAGIA [None]
  - PNEUMONIA [None]
  - MUSCLE DISORDER [None]
  - ASPIRATION [None]
  - ASTHENIA [None]
  - INFLUENZA LIKE ILLNESS [None]
